FAERS Safety Report 7384490-0 (Version None)
Quarter: 2011Q1

REPORT INFORMATION
  Report Type: 
  Country: None (occurrence: None)
  Receive Date: 20110330
  Receipt Date: 20110324
  Transmission Date: 20110831
  Serious: Yes (Other)
  Sender: FDA-Public Use
  Company Number: US-PFIZER INC-2011067168

PATIENT
  Sex: Male

DRUGS (1)
  1. DOSTINEX [Suspect]
     Indication: PITUITARY TUMOUR
     Dosage: UNK

REACTIONS (3)
  - ERECTILE DYSFUNCTION [None]
  - ANORGASMIA [None]
  - LIBIDO DECREASED [None]
